FAERS Safety Report 7680754-1 (Version None)
Quarter: 2011Q3

REPORT INFORMATION
  Report Type: 
  Country: None (occurrence: None)
  Receive Date: 20110812
  Receipt Date: 20110808
  Transmission Date: 20111222
  Serious: Yes (Hospitalization)
  Sender: FDA-Public Use
  Company Number: DE-PFIZER INC-2011181093

PATIENT
  Age: 69 Year
  Sex: Male
  Weight: 104 kg

DRUGS (3)
  1. TEMSIROLIMUS [Suspect]
     Dosage: 25 MG, WEEKLY
     Route: 042
     Dates: start: 20100611, end: 20100702
  2. FENISTIL [Concomitant]
     Indication: PREMEDICATION
     Dosage: 8 MG, PRIOR TO TEMSIROLIMUS ADMINISTRATION
     Dates: start: 20090701
  3. TEMSIROLIMUS [Suspect]
     Indication: RENAL CELL CARCINOMA
     Dosage: 25 MG, WEEKLY
     Route: 042
     Dates: start: 20090701, end: 20090930

REACTIONS (4)
  - DIARRHOEA [None]
  - DEHYDRATION [None]
  - GENERAL PHYSICAL HEALTH DETERIORATION [None]
  - DECREASED APPETITE [None]
